FAERS Safety Report 8581139 (Version 4)
Quarter: 2012Q4

REPORT INFORMATION
  Report Type: Report from Study
  Country: US (occurrence: US)
  Receive Date: 20120525
  Receipt Date: 20120918
  Transmission Date: 20130627
  Serious: Yes (Hospitalization, Other)
  Sender: FDA-Public Use
  Company Number: US-ABBOTT-12P-163-0936990-00

PATIENT
  Age: 74 None
  Sex: Female
  Weight: 65.83 kg

DRUGS (13)
  1. HUMIRA [Suspect]
     Indication: CROHN^S DISEASE
     Route: 058
     Dates: start: 2010
  2. HUMIRA [Suspect]
     Dosage: loading dose
     Route: 058
     Dates: start: 20120526, end: 20120526
  3. UNKNOWN MEDICATION [Concomitant]
     Indication: HYPERTENSION
  4. HYDROCHLOROTHIAZIDE [Concomitant]
     Indication: PRODUCT USED FOR UNKNOWN INDICATION
  5. LISINOPRIL [Concomitant]
     Indication: HYPERTENSION
  6. LISINOPRIL [Concomitant]
  7. SYNTHROID [Concomitant]
     Indication: THYROID DISORDER
  8. ULTRAM [Concomitant]
     Indication: PAIN
  9. PRILOSEC [Concomitant]
     Indication: PRODUCT USED FOR UNKNOWN INDICATION
     Dosage: Daily
  10. XANAX [Concomitant]
     Indication: PRODUCT USED FOR UNKNOWN INDICATION
     Dosage: 0.25 mg daiy at bedtime
  11. CLONIDINE [Concomitant]
     Indication: HYPERTENSION
  12. AMLODIPINE [Concomitant]
     Indication: HYPERTENSION
  13. TYLENOL [Concomitant]
     Indication: HEADACHE

REACTIONS (43)
  - Biliary tract disorder [Recovered/Resolved]
  - Gallbladder operation [Recovered/Resolved]
  - Liver injury [Recovered/Resolved]
  - Malaise [Recovered/Resolved]
  - Crohn^s disease [Recovered/Resolved]
  - Abdominal pain [Recovered/Resolved]
  - Deep vein thrombosis [Unknown]
  - Procedural nausea [Recovered/Resolved]
  - Diarrhoea [Not Recovered/Not Resolved]
  - Female genital tract fistula [Not Recovered/Not Resolved]
  - Fall [Unknown]
  - Arthralgia [Not Recovered/Not Resolved]
  - Dehydration [Unknown]
  - Drug ineffective [Not Recovered/Not Resolved]
  - Fistula discharge [Not Recovered/Not Resolved]
  - Sinusitis [Not Recovered/Not Resolved]
  - Headache [Not Recovered/Not Resolved]
  - Nasal congestion [Not Recovered/Not Resolved]
  - Paranasal sinus hypersecretion [Not Recovered/Not Resolved]
  - Insomnia [Unknown]
  - Pain [Recovered/Resolved]
  - Cholecystitis [Recovered/Resolved]
  - Feeling abnormal [Recovered/Resolved]
  - Abasia [Recovered/Resolved]
  - Nausea [Recovered/Resolved]
  - Asthenia [Recovered/Resolved]
  - Fall [Unknown]
  - Cervical vertebral fracture [Recovered/Resolved]
  - Spinal fracture [Recovered/Resolved]
  - Rotator cuff syndrome [Not Recovered/Not Resolved]
  - Neck pain [Not Recovered/Not Resolved]
  - Back pain [Not Recovered/Not Resolved]
  - Joint dislocation [Not Recovered/Not Resolved]
  - Musculoskeletal pain [Not Recovered/Not Resolved]
  - Nausea [Not Recovered/Not Resolved]
  - International normalised ratio decreased [Not Recovered/Not Resolved]
  - Drug ineffective [Unknown]
  - Female genital tract fistula [Unknown]
  - Fatigue [Unknown]
  - Urinary tract infection [Unknown]
  - Injection site pain [Unknown]
  - Depressed mood [Unknown]
  - Medical device complication [Unknown]
